FAERS Safety Report 8809457 (Version 1)
Quarter: 2012Q4

REPORT INFORMATION
  Report Type: 
  Country: US (occurrence: US)
  Receive Date: 20120926
  Receipt Date: 20120926
  Transmission Date: 20130627
  Serious: No
  Sender: FDA-Public Use
  Company Number: US-ASTRAZENECA-2012SE70573

PATIENT
  Age: 85 Year
  Sex: Female

DRUGS (7)
  1. NEXIUM [Suspect]
     Indication: GASTROOESOPHAGEAL REFLUX DISEASE
     Dosage: EVERYDAY
     Route: 048
  2. NEXIUM [Suspect]
     Indication: ABDOMINAL PAIN UPPER
     Dosage: EVERYDAY
     Route: 048
  3. NEXIUM [Suspect]
     Indication: POLYP
     Dosage: EVERYDAY
     Route: 048
  4. NEXIUM [Suspect]
     Indication: GASTROOESOPHAGEAL REFLUX DISEASE
     Route: 048
  5. NEXIUM [Suspect]
     Indication: ABDOMINAL PAIN UPPER
     Route: 048
  6. NEXIUM [Suspect]
     Indication: POLYP
     Route: 048
  7. ANTIBIOTICS [Concomitant]

REACTIONS (8)
  - Abdominal distension [Unknown]
  - Helicobacter infection [Unknown]
  - Immune system disorder [Unknown]
  - Polyp [Unknown]
  - Eructation [Unknown]
  - Flatulence [Unknown]
  - Abdominal pain upper [Unknown]
  - Off label use [Unknown]
